FAERS Safety Report 13696350 (Version 1)
Quarter: 2017Q2

REPORT INFORMATION
  Report Type: Spontaneous
  Country: US (occurrence: US)
  Receive Date: 20170628
  Receipt Date: 20170628
  Transmission Date: 20170830
  Serious: Yes (Hospitalization, Disabling, Other)
  Sender: FDA-Public Use
  Company Number: US-ALVOGEN-2017-ALVOGEN-092482

PATIENT
  Sex: Female
  Weight: 100.7 kg

DRUGS (1)
  1. ZESTRIL [Suspect]
     Active Substance: LISINOPRIL
     Indication: BLOOD PRESSURE ABNORMAL
     Route: 048
     Dates: end: 2013

REACTIONS (7)
  - Fatigue [Unknown]
  - Sinusitis [Recovered/Resolved]
  - Urinary incontinence [Not Recovered/Not Resolved]
  - Nephrolithiasis [Unknown]
  - Sciatica [Unknown]
  - Back pain [Unknown]
  - Feeling abnormal [Not Recovered/Not Resolved]

NARRATIVE: CASE EVENT DATE: 1997
